FAERS Safety Report 8597330 (Version 3)
Quarter: 2013Q3

REPORT INFORMATION
  Report Type: Spontaneous
  Country: US (occurrence: US)
  Receive Date: 20120605
  Receipt Date: 20130930
  Transmission Date: 20140515
  Serious: Yes (Hospitalization, Other)
  Sender: FDA-Public Use
  Company Number: US-AMGEN-USASP2012029024

PATIENT
  Age: 40 Year
  Sex: Female
  Weight: 68 kg

DRUGS (12)
  1. ENBREL [Suspect]
     Indication: RHEUMATOID ARTHRITIS
     Dosage: 50 MG, 2 TIMES/WK
     Route: 058
     Dates: start: 20050211, end: 20120412
  2. CELEBREX [Concomitant]
     Dosage: 100 MG, UNK
  3. METHOTREXATE [Concomitant]
     Dosage: 2.5 MG, UNK
  4. PREDNISONE [Concomitant]
     Dosage: 1 MG, UNK
  5. SYNTHROID [Concomitant]
     Dosage: 100MCG
  6. PREVACID [Concomitant]
     Dosage: 30 MG, UNK
  7. FISH OIL [Concomitant]
     Dosage: UNK
  8. EYE DROPS [Concomitant]
     Dosage: UNK
  9. MULTIVITAMINS, PLAIN [Concomitant]
     Dosage: UNK
  10. CALCIUM D                          /00944201/ [Concomitant]
     Dosage: UNK
  11. FOLIC ACID [Concomitant]
     Dosage: UNK
  12. BIOTENE                            /00203502/ [Concomitant]
     Dosage: UNK

REACTIONS (5)
  - Periorbital cellulitis [Recovered/Resolved]
  - Nasal abscess [Recovered/Resolved]
  - Rash [Unknown]
  - Staphylococcal infection [Recovered/Resolved]
  - Pharyngitis streptococcal [Recovering/Resolving]
